FAERS Safety Report 10304441 (Version 3)
Quarter: 2015Q1

REPORT INFORMATION
  Report Type: Report from Study
  Country: FR (occurrence: FR)
  Receive Date: 20140715
  Receipt Date: 20150218
  Transmission Date: 20150720
  Serious: Yes (Other)
  Sender: FDA-Public Use
  Company Number: FR-ROCHE-1421351

PATIENT
  Age: 56 Year
  Sex: Female
  Weight: 90 kg

DRUGS (3)
  1. FERRITIN [Concomitant]
     Active Substance: FERRITIN
     Dosage: 280 MCG/L
     Route: 065
     Dates: start: 20140619
  2. METHOXY POLYETHYLENE GLYCOL-EPOETIN BETA [Suspect]
     Active Substance: PEGZEREPOETIN ALFA
     Indication: NEPHROGENIC ANAEMIA
     Route: 042
     Dates: start: 20140415, end: 20140522
  3. FERRITIN [Concomitant]
     Active Substance: FERRITIN
     Dosage: 313 MCG/L
     Route: 065
     Dates: start: 20140327

REACTIONS (1)
  - Drug ineffective [Unknown]

NARRATIVE: CASE EVENT DATE: 20140510
